FAERS Safety Report 7810449-2 (Version None)
Quarter: 2011Q4

REPORT INFORMATION
  Report Type: 
  Country: None (occurrence: None)
  Receive Date: 20111012
  Receipt Date: 20111010
  Transmission Date: 20120403
  Serious: Yes (Disabling, Other)
  Sender: FDA-Public Use
  Company Number: US-MERCK-1103USA00978

PATIENT
  Sex: Female

DRUGS (3)
  1. FOSAMAX [Suspect]
     Route: 048
  2. FOSAMAX [Suspect]
     Route: 048
  3. ALENDRONATE SODIUM [Suspect]
     Route: 048
     Dates: start: 20080101

REACTIONS (5)
  - FEMUR FRACTURE [None]
  - LOW TURNOVER OSTEOPATHY [None]
  - OSTEOPOROSIS [None]
  - STRESS FRACTURE [None]
  - FRACTURE [None]
